FAERS Safety Report 10765370 (Version 1)
Quarter: 2015Q1

REPORT INFORMATION
  Report Type: Spontaneous
  Country: US (occurrence: US)
  Receive Date: 20150205
  Receipt Date: 20150205
  Transmission Date: 20150721
  Serious: Yes (Death)
  Sender: FDA-Public Use
  Company Number: US-PERRIGO-15US001240

PATIENT
  Age: 48 Year
  Sex: Female

DRUGS (8)
  1. CARBAMAZEPINE. [Suspect]
     Active Substance: CARBAMAZEPINE
     Indication: PRODUCT USED FOR UNKNOWN INDICATION
     Dosage: UNKNOWN, UNKNOWN
     Route: 048
  2. MIRTAZAPINE. [Suspect]
     Active Substance: MIRTAZAPINE
     Indication: PRODUCT USED FOR UNKNOWN INDICATION
     Route: 048
  3. NICOTINE TRANSDERMAL SYSTEM PATCH KIT [Suspect]
     Active Substance: NICOTINE
     Indication: PRODUCT USED FOR UNKNOWN INDICATION
     Dosage: UNKNOWN, UNKNOWN
     Route: 048
  4. CLONAZEPAM. [Suspect]
     Active Substance: CLONAZEPAM
     Indication: PRODUCT USED FOR UNKNOWN INDICATION
     Dosage: UNKNOWN, UNKNOWN
     Route: 048
  5. BENZTROPINE [Suspect]
     Active Substance: BENZTROPINE
     Indication: PRODUCT USED FOR UNKNOWN INDICATION
     Dosage: UNKNOWN, UNKNOWN
     Route: 048
  6. LEVOTHYROXINE [Suspect]
     Active Substance: LEVOTHYROXINE
     Indication: PRODUCT USED FOR UNKNOWN INDICATION
     Dosage: UNKNOWN, UNKNOWN
     Route: 048
  7. ROSUVASTATIN [Suspect]
     Active Substance: ROSUVASTATIN
     Indication: PRODUCT USED FOR UNKNOWN INDICATION
     Dosage: UNK, UNK
     Route: 048
  8. ACETAMINOPHEN 650MG ER 544 [Suspect]
     Active Substance: ACETAMINOPHEN
     Indication: PRODUCT USED FOR UNKNOWN INDICATION
     Dosage: UNKNOWN, UNKNOWN
     Route: 048

REACTIONS (2)
  - Completed suicide [None]
  - Death [Fatal]
